FAERS Safety Report 8017270-3 (Version None)
Quarter: 2012Q1

REPORT INFORMATION
  Report Type: 
  Country: None (occurrence: None)
  Receive Date: 20120102
  Receipt Date: 20111222
  Transmission Date: 20120608
  Serious: Yes (Hospitalization)
  Sender: FDA-Public Use
  Company Number: CH-NOVOPROD-341184

PATIENT

DRUGS (5)
  1. TORSEMIDE [Concomitant]
  2. BISOPROLOL [Concomitant]
  3. GLICLAZIDE [Concomitant]
  4. VICTOZA [Suspect]
     Indication: DIABETES MELLITUS
     Dosage: 1.2 MG, QD
     Route: 058
     Dates: start: 20100618, end: 20110101
  5. METFORMIN HCL [Concomitant]

REACTIONS (1)
  - CHOLELITHIASIS [None]
